FAERS Safety Report 16600596 (Version 2)
Quarter: 2019Q3

REPORT INFORMATION
  Report Type: Spontaneous
  Country: US (occurrence: US)
  Receive Date: 20190719
  Receipt Date: 20190909
  Transmission Date: 20191004
  Serious: No
  Sender: FDA-Public Use
  Company Number: US-BAYER-2019-130612

PATIENT
  Age: 80 Year
  Sex: Female
  Weight: 66 kg

DRUGS (13)
  1. VITAMIN B [Concomitant]
     Active Substance: VITAMIN B
  2. ZYRTEC [Concomitant]
     Active Substance: CETIRIZINE HYDROCHLORIDE
  3. RETINOL [Concomitant]
     Active Substance: RETINOL
  4. MAGNESIUM [Concomitant]
     Active Substance: MAGNESIUM
  5. VITAMIN B6 [Concomitant]
     Active Substance: PYRIDOXINE HYDROCHLORIDE
  6. CALCIUM [Concomitant]
     Active Substance: CALCIUM
  7. CLARITIN-D 24 HOUR [Suspect]
     Active Substance: LORATADINE\PSEUDOEPHEDRINE SULFATE
     Dosage: 1 DF, BID
     Route: 048
     Dates: start: 20190709, end: 20190710
  8. VITAMIN D3 [Concomitant]
     Active Substance: CHOLECALCIFEROL
  9. CALCIUM [Concomitant]
     Active Substance: CALCIUM
     Dosage: UNK
  10. VITAMIN B12 [Concomitant]
     Active Substance: CYANOCOBALAMIN
  11. SYMBICORT [Concomitant]
     Active Substance: BUDESONIDE\FORMOTEROL FUMARATE DIHYDRATE
     Dosage: UNK
     Dates: start: 2009
  12. ZINC. [Concomitant]
     Active Substance: ZINC
  13. PENICILINA [BENZYLPENICILLIN] [Concomitant]
     Dosage: UNK
     Dates: start: 201907

REACTIONS (7)
  - Heart rate increased [None]
  - Dizziness [Not Recovered/Not Resolved]
  - Headache [Not Recovered/Not Resolved]
  - Diarrhoea [None]
  - Drug ineffective [Not Recovered/Not Resolved]
  - Blood pressure increased [None]
  - Extra dose administered [None]

NARRATIVE: CASE EVENT DATE: 20190709
